FAERS Safety Report 11106992 (Version 2)
Quarter: 2015Q2

REPORT INFORMATION
  Report Type: Spontaneous
  Country: US (occurrence: US)
  Receive Date: 20150512
  Receipt Date: 20150529
  Transmission Date: 20150821
  Serious: Yes (Hospitalization, Disabling)
  Sender: FDA-Public Use
  Company Number: US-PFIZER INC-2015158282

PATIENT
  Age: 48 Year
  Sex: Male
  Weight: 82 kg

DRUGS (1)
  1. VIAGRA [Suspect]
     Active Substance: SILDENAFIL CITRATE
     Indication: SEXUAL DYSFUNCTION
     Dosage: UNK, WEEKLY
     Dates: start: 2000

REACTIONS (3)
  - Back disorder [Recovered/Resolved]
  - Product use issue [Unknown]
  - Accident [Recovered/Resolved]

NARRATIVE: CASE EVENT DATE: 2000
